FAERS Safety Report 14134185 (Version 1)
Quarter: 2017Q4

REPORT INFORMATION
  Report Type: Spontaneous
  Country: DE (occurrence: None)
  Receive Date: 20171027
  Receipt Date: 20171027
  Transmission Date: 20180321
  Serious: Yes (Hospitalization)
  Sender: FDA-Public Use
  Company Number: None

PATIENT
  Sex: Female
  Weight: 57.3 kg

DRUGS (16)
  1. GLIMEPIRIDE. [Concomitant]
     Active Substance: GLIMEPIRIDE
  2. SPIRONOLACTONE. [Concomitant]
     Active Substance: SPIRONOLACTONE
  3. TORASEMID [Concomitant]
     Active Substance: TORSEMIDE
  4. DELOISLOL [Concomitant]
  5. SALBUTAMOL [Concomitant]
     Active Substance: ALBUTEROL
  6. KALLUM [Concomitant]
  7. BRAUXTAB [Concomitant]
  8. FROSUBIN [Concomitant]
  9. RIBAVIRIN 800MG [Suspect]
     Active Substance: RIBAVIRIN
     Indication: HEPATITIS C
     Route: 048
     Dates: start: 20170218, end: 20170809
  10. EPCLUSA [Suspect]
     Active Substance: SOFOSBUVIR\VELPATASVIR
     Indication: HEPATITIS C
     Dosage: DOSE AMOUNT - 400MG/100MG
     Route: 048
     Dates: start: 20170218, end: 20170809
  11. L-THYROXIN [Concomitant]
     Active Substance: LEVOTHYROXINE SODIUM
  12. PROPRANOLOL [Concomitant]
     Active Substance: PROPRANOLOL HYDROCHLORIDE
  13. AUNTOPRAZOL [Concomitant]
  14. CALCIUM BRAUSE [Concomitant]
  15. LACTULOSE. [Concomitant]
     Active Substance: LACTULOSE
  16. ALLOPURINOL. [Concomitant]
     Active Substance: ALLOPURINOL

REACTIONS (1)
  - Peritonitis bacterial [None]

NARRATIVE: CASE EVENT DATE: 20170721
